FAERS Safety Report 25490366 (Version 1)
Quarter: 2025Q2

REPORT INFORMATION
  Report Type: Spontaneous
  Country: US (occurrence: US)
  Receive Date: 20250628
  Receipt Date: 20250628
  Transmission Date: 20250717
  Serious: No
  Sender: SANOFI AVENTIS
  Company Number: US-SA-2025SA181630

PATIENT
  Sex: Female
  Weight: 81.82 kg

DRUGS (6)
  1. DUPIXENT [Suspect]
     Active Substance: DUPILUMAB
     Indication: Dermatitis atopic
     Dosage: 300 MG, QOW
     Route: 058
  2. LEVOTHYROXINE SODIUM [Concomitant]
     Active Substance: LEVOTHYROXINE SODIUM
  3. DORZOLAMIDE\TIMOLOL [Concomitant]
     Active Substance: DORZOLAMIDE\TIMOLOL
  4. LATANOPROST [Concomitant]
     Active Substance: LATANOPROST
  5. OPZELURA [Concomitant]
     Active Substance: RUXOLITINIB PHOSPHATE
  6. SILVER SULFADIAZINE [Concomitant]
     Active Substance: SILVER SULFADIAZINE

REACTIONS (4)
  - Weight increased [Unknown]
  - Skin exfoliation [Unknown]
  - Dry skin [Unknown]
  - Pruritus [Unknown]
